FAERS Safety Report 7560903-6 (Version None)
Quarter: 2011Q2

REPORT INFORMATION
  Report Type: 
  Country: None (occurrence: None)
  Receive Date: 20110621
  Receipt Date: 20110609
  Transmission Date: 20111010
  Serious: Yes (Other)
  Sender: FDA-Public Use
  Company Number: US-ELI_LILLY_AND_COMPANY-US200909000678

PATIENT
  Sex: Female

DRUGS (4)
  1. FORTEO [Suspect]
     Dosage: 20 UG, QD
  2. FORTEO [Suspect]
     Dosage: 20 UG, QD
  3. FORTEO [Suspect]
     Indication: OSTEOPOROSIS
     Dosage: 20 UG, DAILY (1/D)
     Dates: start: 20090801
  4. FORTEO [Suspect]
     Dosage: 20 UG, QD

REACTIONS (13)
  - MEMORY IMPAIRMENT [None]
  - SWELLING FACE [None]
  - PAIN IN EXTREMITY [None]
  - INJURY ASSOCIATED WITH DEVICE [None]
  - SENSATION OF HEAVINESS [None]
  - LACERATION [None]
  - WEIGHT INCREASED [None]
  - WRONG TECHNIQUE IN DRUG USAGE PROCESS [None]
  - LOSS OF CONSCIOUSNESS [None]
  - CONTUSION [None]
  - OEDEMA PERIPHERAL [None]
  - MEDICATION ERROR [None]
  - FALL [None]
